FAERS Safety Report 10179043 (Version 1)
Quarter: 2014Q2

REPORT INFORMATION
  Report Type: Spontaneous
  Country: US (occurrence: US)
  Receive Date: 20140519
  Receipt Date: 20140519
  Transmission Date: 20141212
  Serious: No
  Sender: FDA-Public Use
  Company Number: US-BIOGENIDEC-2014BI042145

PATIENT
  Age: 56 Year
  Sex: Male

DRUGS (4)
  1. TECFIDERA [Suspect]
     Indication: MULTIPLE SCLEROSIS
     Route: 048
     Dates: start: 20140404
  2. BACLOFEN [Concomitant]
  3. RITALIN [Concomitant]
  4. CITALOPRAM [Concomitant]

REACTIONS (4)
  - Nausea [Unknown]
  - Headache [Unknown]
  - Flushing [Unknown]
  - Vomiting [Unknown]
